FAERS Safety Report 5367557-8 (Version None)
Quarter: 2007Q2

REPORT INFORMATION
  Report Type: 
  Country: None (occurrence: None)
  Receive Date: 20070622
  Receipt Date: 20061110
  Transmission Date: 20071010
  Serious: No
  Sender: FDA-Public Use
  Company Number: US-ASTRAZENECA-2006UW23487

PATIENT
  Age: 53 Year
  Sex: Female

DRUGS (5)
  1. PULMICORT [Suspect]
     Indication: BRONCHITIS
     Route: 055
     Dates: start: 20061102
  2. SINGULAIR [Concomitant]
  3. COUMADIN [Concomitant]
  4. ALBUTEROL [Concomitant]
  5. COZAAR [Concomitant]

REACTIONS (2)
  - OEDEMA PERIPHERAL [None]
  - SWELLING FACE [None]
